FAERS Safety Report 22077969 (Version 2)
Quarter: 2023Q2

REPORT INFORMATION
  Report Type: Report from Study
  Country: BE (occurrence: BE)
  Receive Date: 20230309
  Receipt Date: 20230616
  Transmission Date: 20230721
  Serious: Yes (Hospitalization)
  Sender: FDA-Public Use
  Company Number: BE-ARGENX-2023-ARGX-BE000670

PATIENT
  Age: 87 Year
  Sex: Female
  Weight: 53 kg

DRUGS (32)
  1. EFGARTIGIMOD ALFA [Suspect]
     Active Substance: EFGARTIGIMOD ALFA
     Indication: Myasthenia gravis
     Dosage: 530 MG, 2/WEEK
     Route: 042
     Dates: start: 20221215
  2. AMLODIPINE BESYLATE\HYDROCHLOROTHIAZIDE\OLMESARTAN MEDOXOMIL [Concomitant]
     Active Substance: AMLODIPINE BESYLATE\HYDROCHLOROTHIAZIDE\OLMESARTAN MEDOXOMIL
     Indication: Hypertension
     Dosage: 40/5/12.5MG, DAILY
     Route: 048
     Dates: start: 2013
  3. SIMBRINZA [Concomitant]
     Active Substance: BRIMONIDINE TARTRATE\BRINZOLAMIDE
     Indication: Glaucoma
     Dosage: 1 GTT, BID
     Dates: start: 20190903
  4. LUTOM 3 [Concomitant]
     Indication: Glaucoma
     Dosage: UNK, DAILY
     Route: 048
     Dates: start: 20190903
  5. MESTINON [Concomitant]
     Active Substance: PYRIDOSTIGMINE BROMIDE
     Indication: Myasthenia gravis
     Dosage: 60 MG, QID
     Route: 048
     Dates: start: 201402
  6. MEDROL [Concomitant]
     Active Substance: METHYLPREDNISOLONE
     Indication: Myasthenia gravis
     Dosage: 16 MG
     Dates: start: 201404
  7. MEDROL [Concomitant]
     Active Substance: METHYLPREDNISOLONE
     Dosage: 32 MG 4 WEEKS THEN BACK TO 16 MG
     Dates: start: 201407
  8. MEDROL [Concomitant]
     Active Substance: METHYLPREDNISOLONE
     Dosage: 8 MG
     Dates: start: 201502
  9. MEDROL [Concomitant]
     Active Substance: METHYLPREDNISOLONE
     Dosage: 4 MG
     Dates: start: 201506
  10. MEDROL [Concomitant]
     Active Substance: METHYLPREDNISOLONE
     Dosage: 8 MG, DAILY
     Dates: start: 201607
  11. MEDROL [Concomitant]
     Active Substance: METHYLPREDNISOLONE
     Dosage: 4 MG, BID
     Dates: start: 201807
  12. MEDROL [Concomitant]
     Active Substance: METHYLPREDNISOLONE
     Dosage: 4 MG, DAILY
     Dates: start: 201812
  13. MEDROL [Concomitant]
     Active Substance: METHYLPREDNISOLONE
     Dosage: 8 MG
     Dates: start: 202107
  14. MEDROL [Concomitant]
     Active Substance: METHYLPREDNISOLONE
     Dosage: 6 MG, DAILY
     Route: 048
     Dates: start: 202202
  15. REMERGON [Concomitant]
     Active Substance: MIRTAZAPINE
     Indication: Insomnia
     Dosage: 15 MG, DAILY
     Route: 048
     Dates: start: 2013
  16. REMERGON [Concomitant]
     Active Substance: MIRTAZAPINE
     Dosage: UNK
     Route: 042
     Dates: start: 20221129
  17. OMEPRAZOLE [Concomitant]
     Active Substance: OMEPRAZOLE
     Indication: Prophylaxis
     Dosage: 40 MG, DAILY
     Route: 048
     Dates: start: 2013
  18. LORMETAZEPAM [Concomitant]
     Active Substance: LORMETAZEPAM
     Indication: Insomnia
     Dosage: 2 MG, DAILY
     Route: 048
     Dates: start: 202107
  19. STEOVIT FORTE [Concomitant]
     Indication: Supplementation therapy
     Dosage: 1000 MG, DAILY
     Route: 048
     Dates: start: 2019
  20. LEVOTHYROXINE [Concomitant]
     Active Substance: LEVOTHYROXINE
     Indication: Hypothyroidism
     Dosage: 100 UG, DAILY
     Route: 048
     Dates: start: 1978
  21. CELLCEPT [Concomitant]
     Active Substance: MYCOPHENOLATE MOFETIL
     Indication: Myasthenia gravis
     Dosage: 1 G, BID
     Dates: start: 202107
  22. CELLCEPT [Concomitant]
     Active Substance: MYCOPHENOLATE MOFETIL
     Dosage: 500 MG, BID
     Route: 048
     Dates: start: 202202
  23. FOSFOMYCIN TROMETHAMINE [Concomitant]
     Active Substance: FOSFOMYCIN TROMETHAMINE
     Indication: Urinary tract infection
     Dosage: 3 G
     Route: 048
     Dates: start: 20230123, end: 20230123
  24. AZITHROMYCIN [Concomitant]
     Active Substance: AZITHROMYCIN
     Indication: Bronchitis
     Dosage: 250 MG, DAILY
     Route: 048
     Dates: start: 20230224, end: 20230227
  25. IMURAN [Concomitant]
     Active Substance: AZATHIOPRINE
     Indication: Myasthenia gravis
     Dosage: 50 MG, BID
     Dates: start: 201404
  26. IMURAN [Concomitant]
     Active Substance: AZATHIOPRINE
     Dosage: 50 - 75 MG, DAILY
     Dates: start: 201607
  27. IMURAN [Concomitant]
     Active Substance: AZATHIOPRINE
     Dosage: 2 X 75 MG AND THEN 2 X 100 MG
     Dates: start: 201708
  28. IMURAN [Concomitant]
     Active Substance: AZATHIOPRINE
     Dosage: 100 MG, BID
     Dates: start: 201709
  29. IMURAN [Concomitant]
     Active Substance: AZATHIOPRINE
     Dosage: UNK
     Dates: start: 202202
  30. Immunoglobulin [Concomitant]
     Indication: Myasthenia gravis
  31. TRAZODONE [Concomitant]
     Active Substance: TRAZODONE HYDROCHLORIDE
     Indication: Sleep disorder
     Dosage: 50 MG
     Dates: start: 202107
  32. Enterol [Concomitant]
     Indication: Diarrhoea
     Dosage: 250 MG (MAX 3)

REACTIONS (1)
  - Respiratory syncytial virus infection [Recovered/Resolved]

NARRATIVE: CASE EVENT DATE: 20230227
